FAERS Safety Report 8321111-4 (Version None)
Quarter: 2012Q2

REPORT INFORMATION
  Report Type: 
  Country: None (occurrence: None)
  Receive Date: 20120430
  Receipt Date: 20120420
  Transmission Date: 20120825
  Serious: Yes (Hospitalization)
  Sender: FDA-Public Use
  Company Number: PL-UCBSA-047747

PATIENT
  Age: 74 Year
  Sex: Female
  Weight: 81 kg

DRUGS (21)
  1. PREDNISONE [Concomitant]
     Indication: RHEUMATOID ARTHRITIS
     Route: 048
     Dates: start: 20110107, end: 20111206
  2. PREDNISONE [Concomitant]
     Route: 048
     Dates: start: 20120308
  3. CALPEROS [Concomitant]
     Indication: OSTEOPOROSIS PROPHYLAXIS
     Route: 048
     Dates: start: 20090901
  4. ARAVA [Concomitant]
     Route: 048
     Dates: start: 20110307, end: 20111130
  5. PREDNISONE [Concomitant]
     Route: 048
     Dates: start: 20111207, end: 20111230
  6. PREDNISONE [Concomitant]
     Route: 048
     Dates: start: 20120106, end: 20120222
  7. TRAMADOL HCL [Concomitant]
     Indication: OSTEOARTHRITIS
     Dosage: 1 TAB AS NECESSARY
     Route: 048
     Dates: start: 20110307, end: 20111215
  8. TRAMADOL HCL [Concomitant]
     Dosage: 1 TABLET TID
     Route: 048
     Dates: start: 20111216, end: 20120208
  9. TRAMADOL HCL [Concomitant]
     Indication: RHEUMATOID ARTHRITIS
     Dosage: 1 TAB AS NECESSARY
     Route: 048
     Dates: start: 20110307, end: 20111215
  10. ARAVA [Concomitant]
     Route: 048
     Dates: start: 20111217, end: 20111228
  11. TRAMADOL HCL [Concomitant]
     Dosage: 1 TABLET TID
     Route: 048
     Dates: start: 20111216, end: 20120208
  12. PREDNISONE [Concomitant]
     Route: 048
     Dates: start: 20111231, end: 20120105
  13. TRAMADOL HYDROCHLORIDE [Concomitant]
     Indication: OSTEOARTHRITIS
     Route: 048
     Dates: start: 20110307
  14. CERTOLIZUMAB PEGOL [Suspect]
     Indication: RHEUMATOID ARTHRITIS
     Route: 058
     Dates: start: 20101201, end: 20111130
  15. ARAVA [Concomitant]
     Indication: RHEUMATOID ARTHRITIS
     Route: 048
     Dates: start: 20120223
  16. PREDNISONE [Concomitant]
     Route: 048
     Dates: start: 20120223, end: 20120307
  17. AULIN [Concomitant]
     Indication: RHEUMATOID ARTHRITIS
     Route: 048
     Dates: start: 20091015
  18. OMEPRAZOLE [Concomitant]
     Indication: PROPHYLAXIS
     Route: 048
     Dates: start: 20090901
  19. TRAMADOL HCL [Concomitant]
     Indication: ANALGESIC THERAPY
     Dosage: 1 TAB AS NECESSARY
     Route: 048
     Dates: start: 20110307, end: 20111215
  20. TRAMADOL HCL [Concomitant]
     Dosage: 1 TABLET TID
     Route: 048
     Dates: start: 20111216, end: 20120208
  21. TRAMADOL HYDROCHLORIDE [Concomitant]
     Indication: RHEUMATOID ARTHRITIS
     Route: 048
     Dates: start: 20110307

REACTIONS (1)
  - JOINT PROSTHESIS USER [None]
